FAERS Safety Report 8158617-7 (Version None)
Quarter: 2012Q1

REPORT INFORMATION
  Report Type: 
  Country: None (occurrence: None)
  Receive Date: 20120223
  Receipt Date: 20120214
  Transmission Date: 20120608
  Serious: Yes (Hospitalization)
  Sender: FDA-Public Use
  Company Number: US-US-EMD SERONO, INC.-7013998

PATIENT
  Sex: Female
  Weight: 114 kg

DRUGS (8)
  1. ASPIRIN [Concomitant]
  2. CYMBALTA [Concomitant]
  3. REBIF [Suspect]
     Route: 058
     Dates: start: 20101214
  4. GABAPENTIN [Concomitant]
  5. ELAVIL [Concomitant]
  6. REBIF [Suspect]
     Indication: RELAPSING-REMITTING MULTIPLE SCLEROSIS
     Route: 058
     Dates: start: 20100312, end: 20100501
  7. HYPERTENSION MEDICATION [Concomitant]
     Indication: HYPERTENSION
  8. NIFEDIPINE [Concomitant]

REACTIONS (6)
  - ANEURYSM [None]
  - FALL [None]
  - AORTIC DISSECTION [None]
  - RENAL FAILURE [None]
  - HYPERTENSION [None]
  - MUSCULAR WEAKNESS [None]
